FAERS Safety Report 4993272-6 (Version None)
Quarter: 2006Q1

REPORT INFORMATION
  Report Type: 
  Country: None (occurrence: None)
  Receive Date: 20060314
  Receipt Date: 20050711
  Transmission Date: 20060701
  Serious: Yes (Other)
  Sender: FDA-Public Use
  Company Number: 200512216BCC

PATIENT
  Age: 63 Year
  Sex: Female
  Weight: 63.5036 kg

DRUGS (1)
  1. ALEVE [Suspect]
     Indication: BACK PAIN
     Dosage: 220 MG, BID, ORAL
     Route: 048
     Dates: start: 20050401, end: 20050501

REACTIONS (5)
  - ABDOMINAL PAIN UPPER [None]
  - DIARRHOEA [None]
  - FLATULENCE [None]
  - HAEMATOCHEZIA [None]
  - STOMACH DISCOMFORT [None]
